FAERS Safety Report 10440745 (Version 1)
Quarter: 2014Q3

REPORT INFORMATION
  Report Type: Spontaneous
  Country: US (occurrence: None)
  Receive Date: 20140908
  Receipt Date: 20140908
  Transmission Date: 20150326
  Serious: Yes (Other)
  Sender: FDA-Public Use
  Company Number: None

PATIENT
  Age: 58 Year
  Sex: Male
  Weight: 72.58 kg

DRUGS (2)
  1. ATORVASTATIN [Suspect]
     Active Substance: ATORVASTATIN
     Indication: BLOOD CHOLESTEROL INCREASED
     Dosage: 1 PILL IN EVENING, TAKEN BY MOUTH
     Route: 048
     Dates: start: 20130628, end: 20140809
  2. SIMVASTATIN 40 MG [Suspect]
     Active Substance: SIMVASTATIN
     Indication: BLOOD CHOLESTEROL INCREASED
     Dosage: 1 PILL IN EVENING, ONCE DAILY, TAKEN BY MOUTH
     Route: 048
     Dates: start: 20080918, end: 20130627

REACTIONS (3)
  - Tremor [None]
  - Vitamin B1 decreased [None]
  - Nervousness [None]

NARRATIVE: CASE EVENT DATE: 20140809
